FAERS Safety Report 4672701-1 (Version None)
Quarter: 2005Q2

REPORT INFORMATION
  Report Type: 
  Country: None (occurrence: None)
  Receive Date: 20050524
  Receipt Date: 20050517
  Transmission Date: 20051028
  Serious: Yes (Hospitalization)
  Sender: FDA-Public Use
  Company Number: US-ROCHE-405123

PATIENT

DRUGS (2)
  1. TAMIFLU [Suspect]
     Indication: DRUG USE FOR UNKNOWN INDICATION
     Route: 048
  2. KEFLEX [Interacting]
     Indication: CELLULITIS
     Route: 065

REACTIONS (4)
  - CELLULITIS [None]
  - DRUG INTERACTION [None]
  - ERYTHEMA MULTIFORME [None]
  - INFECTION [None]
